FAERS Safety Report 7803175-7 (Version None)
Quarter: 2011Q4

REPORT INFORMATION
  Report Type: 
  Country: None (occurrence: None)
  Receive Date: 20111007
  Receipt Date: 20110928
  Transmission Date: 20120403
  Serious: Yes (Hospitalization)
  Sender: FDA-Public Use
  Company Number: PHHY2011FR86280

PATIENT
  Sex: Female

DRUGS (8)
  1. GLEEVEC [Suspect]
     Dosage: 300 MG, BID
     Dates: start: 20110718
  2. GLEEVEC [Suspect]
     Dosage: 200 MG, BID
     Dates: start: 20110805
  3. TRIENTINE [Concomitant]
     Indication: HEPATO-LENTICULAR DEGENERATION
     Dates: start: 20110101
  4. CELECTOL [Concomitant]
     Indication: HYPERTENSION
     Dates: start: 20110101
  5. GLEEVEC [Suspect]
     Dosage: 100 MG, BID
     Dates: start: 20110811, end: 20110816
  6. DURAGESIC-100 [Concomitant]
     Dates: start: 20110101
  7. MORPHINE SULFATE [Concomitant]
  8. MORPHINE SULFATE [Concomitant]

REACTIONS (6)
  - ARTHRALGIA [None]
  - MUSCULOSKELETAL PAIN [None]
  - MUSCULOSKELETAL CHEST PAIN [None]
  - METASTASES TO LIVER [None]
  - MYALGIA [None]
  - METASTASES TO MENINGES [None]
